FAERS Safety Report 17454496 (Version 1)
Quarter: 2020Q1

REPORT INFORMATION
  Report Type: Spontaneous
  Country: US (occurrence: US)
  Receive Date: 20200211
  Receipt Date: 20200211
  Transmission Date: 20200409
  Serious: Yes (Other)
  Sender: FDA-Public Use
  Company Number: None

PATIENT
  Age: 77 Year
  Sex: Male
  Weight: 86.18 kg

DRUGS (1)
  1. BENZONATATE 100MG [Suspect]
     Active Substance: BENZONATATE
     Indication: INFLUENZA
     Dosage: ?          OTHER FREQUENCY:3;?
     Route: 048

REACTIONS (1)
  - Hallucination [None]

NARRATIVE: CASE EVENT DATE: 20200129
